FAERS Safety Report 21915110 (Version 1)
Quarter: 2023Q1

REPORT INFORMATION
  Report Type: Spontaneous
  Country: US (occurrence: US)
  Receive Date: 20230126
  Receipt Date: 20230126
  Transmission Date: 20230418
  Serious: No
  Sender: FDA-Public Use
  Company Number: US-CATALYST PHARMACEUTICALS, INC-2022CAT00078

PATIENT
  Age: 53 Year
  Sex: Female
  Weight: 90.703 kg

DRUGS (14)
  1. FIRDAPSE [Suspect]
     Active Substance: AMIFAMPRIDINE PHOSPHATE
     Indication: Myasthenic syndrome
     Dosage: 15 MG, 3X/DAY
     Route: 048
     Dates: start: 202010
  2. GABAPENTIN [Concomitant]
     Active Substance: GABAPENTIN
  3. AMITRIPTYLINE [Concomitant]
     Active Substance: AMITRIPTYLINE
  4. UNSPECIFIED CHOLESTEROL MEDICINE [Concomitant]
  5. UNSPECIFIED HIGH BLOOD PRESSURE MEDICINE [Concomitant]
  6. INSULIN NOS [Concomitant]
     Active Substance: INSULIN NOS
  7. OZEMPIC [Concomitant]
     Active Substance: SEMAGLUTIDE
  8. METFORMIN [Concomitant]
     Active Substance: METFORMIN HYDROCHLORIDE
  9. VITAMIN B12 [Concomitant]
     Active Substance: CYANOCOBALAMIN
  10. VITAMIN D3 [Concomitant]
     Active Substance: CHOLECALCIFEROL
  11. MELATONIN [Concomitant]
     Active Substance: MELATONIN
  12. IRON [Concomitant]
     Active Substance: IRON
  13. UNSPECIFIED ALLERGY PILL [Concomitant]
  14. UNSPECIFIED INGREDIENT [Concomitant]
     Active Substance: UNSPECIFIED INGREDIENT

REACTIONS (1)
  - Tooth abscess [Recovered/Resolved]

NARRATIVE: CASE EVENT DATE: 20220201
